FAERS Safety Report 4992964-2 (Version None)
Quarter: 2006Q2

REPORT INFORMATION
  Report Type: 
  Country: None (occurrence: None)
  Receive Date: 20060504
  Receipt Date: 20060126
  Transmission Date: 20061013
  Serious: Yes (Death, Hospitalization)
  Sender: FDA-Public Use
  Company Number: US-MERCK-0601USA03589

PATIENT
  Age: 70 Year
  Sex: Female

DRUGS (14)
  1. VIOXX [Suspect]
     Route: 048
     Dates: start: 19991227, end: 20030323
  2. TOPROL-XL [Concomitant]
     Route: 065
  3. AVANDIA [Concomitant]
     Route: 065
  4. PAMELOR [Concomitant]
     Route: 065
  5. MAGNESIUM SULFATE [Concomitant]
     Route: 065
  6. INSULIN [Concomitant]
     Route: 065
  7. PLAVIX [Concomitant]
     Route: 065
  8. LOTREL [Concomitant]
     Route: 065
  9. NEURONTIN [Concomitant]
     Route: 065
  10. AMARYL [Concomitant]
     Route: 065
  11. POTASSIUM CHLORIDE [Concomitant]
     Route: 065
  12. DETROL [Concomitant]
     Route: 065
  13. CLONIDINE [Concomitant]
     Indication: BLOOD PRESSURE
     Route: 065
  14. XANAX [Concomitant]
     Route: 065

REACTIONS (10)
  - ASPIRATION [None]
  - CEREBROVASCULAR ACCIDENT [None]
  - DEATH [None]
  - DEPRESSION [None]
  - FALL [None]
  - HIP FRACTURE [None]
  - HYPERCHOLESTEROLAEMIA [None]
  - HYPERLIPIDAEMIA [None]
  - ISCHAEMIC CEREBRAL INFARCTION [None]
  - RENAL IMPAIRMENT [None]
